FAERS Safety Report 6388293-5 (Version None)
Quarter: 2009Q3

REPORT INFORMATION
  Report Type: 
  Country: None (occurrence: None)
  Receive Date: 20090930
  Receipt Date: 20090922
  Transmission Date: 20100115
  Serious: Yes (Hospitalization)
  Sender: FDA-Public Use
  Company Number: 20097225

PATIENT
  Age: 61 Year
  Sex: Female
  Weight: 45 kg

DRUGS (4)
  1. BACLOFEN [Suspect]
     Indication: MUSCLE SPASTICITY
     Dosage: 50-60 MCG, DAILY, INTRATHECAL - SE
     Route: 037
     Dates: start: 20090520
  2. TERNILIN [Concomitant]
  3. DIAZEPAM [Concomitant]
  4. THYRACIN S [Concomitant]

REACTIONS (6)
  - ABDOMINAL PAIN [None]
  - APPENDICITIS [None]
  - C-REACTIVE PROTEIN INCREASED [None]
  - DIARRHOEA [None]
  - ILEUS PARALYTIC [None]
  - PYREXIA [None]
